FAERS Safety Report 24280570 (Version 1)
Quarter: 2024Q3

REPORT INFORMATION
  Report Type: Spontaneous
  Country: BG (occurrence: BG)
  Receive Date: 20240904
  Receipt Date: 20240904
  Transmission Date: 20241016
  Serious: Yes (Death)
  Sender: IMMUNOCORE
  Company Number: BG-Medison-000525

PATIENT

DRUGS (1)
  1. KIMMTRAK [Suspect]
     Active Substance: TEBENTAFUSP-TEBN
     Indication: Metastatic ocular melanoma
     Dosage: 20 MICROGRAM WEEKLY
     Route: 042
     Dates: start: 20240820, end: 20240820

REACTIONS (2)
  - Hepatorenal syndrome [Fatal]
  - Hepatorenal failure [Fatal]

NARRATIVE: CASE EVENT DATE: 20240821
